FAERS Safety Report 4930054-5 (Version None)
Quarter: 2006Q1

REPORT INFORMATION
  Report Type: 
  Country: None (occurrence: None)
  Receive Date: 20060228
  Receipt Date: 20060228
  Transmission Date: 20060701
  Serious: Yes (Hospitalization)
  Sender: FDA-Public Use
  Company Number: None

PATIENT
  Age: 71 Year

DRUGS (1)
  1. SILDENAFIL CITRATE [Suspect]
     Indication: CARDIAC FAILURE CONGESTIVE
     Dosage: 12.5 MF PO TID
     Route: 048
     Dates: start: 20050714

REACTIONS (4)
  - CARDIAC FAILURE CONGESTIVE [None]
  - CONDITION AGGRAVATED [None]
  - HYPOTENSION [None]
  - THERAPY NON-RESPONDER [None]
